FAERS Safety Report 24148333 (Version 1)
Quarter: 2024Q3

REPORT INFORMATION
  Report Type: Spontaneous
  Country: CN (occurrence: None)
  Receive Date: 20240729
  Receipt Date: 20240729
  Transmission Date: 20241017
  Serious: Yes (Life-Threatening, Hospitalization, Other)
  Sender: ASTRAZENECA
  Company Number: 2024A171179

PATIENT
  Age: 24811 Day
  Sex: Male
  Weight: 50 kg

DRUGS (3)
  1. DAPAGLIFLOZIN [Suspect]
     Active Substance: DAPAGLIFLOZIN
     Indication: Type 2 diabetes mellitus
     Route: 048
     Dates: start: 20240703, end: 20240717
  2. PREDNISONE [Concomitant]
     Active Substance: PREDNISONE
     Indication: Glomerulonephritis membranous
     Route: 048
     Dates: start: 20240619, end: 20240717
  3. CYCLOSPORINE [Concomitant]
     Active Substance: CYCLOSPORINE
     Indication: Glomerulonephritis membranous
     Route: 048
     Dates: start: 20240619, end: 20240717

REACTIONS (9)
  - Sepsis [Recovering/Resolving]
  - Urinary tract infection [Recovering/Resolving]
  - Cystic lung disease [Unknown]
  - Pneumonia [Unknown]
  - Gastroenteritis [Unknown]
  - Chronic hepatitis B [Unknown]
  - Diverticulum intestinal [Unknown]
  - Renal cyst [Unknown]
  - Hepatic cyst [Unknown]

NARRATIVE: CASE EVENT DATE: 20240717
